FAERS Safety Report 6080886-8 (Version None)
Quarter: 2009Q1

REPORT INFORMATION
  Report Type: 
  Country: None (occurrence: None)
  Receive Date: 20090217
  Receipt Date: 20090205
  Transmission Date: 20090719
  Serious: Yes (Other)
  Sender: FDA-Public Use
  Company Number: US-ROXANE LABORATORIES, INC.-2008-BP-03819RO

PATIENT
  Age: 37 Year
  Sex: Female

DRUGS (12)
  1. PREDNISONE [Suspect]
     Indication: IMMUNOSUPPRESSION
  2. TACROLIMUS [Suspect]
     Indication: IMMUNOSUPPRESSION
  3. MYCOPHENOLIC ACID [Suspect]
     Indication: IMMUNOSUPPRESSION
  4. CYCLOSPORINE [Suspect]
     Indication: IMMUNOSUPPRESSION
  5. VALGANCICLOVIR HCL [Suspect]
     Indication: ANTIVIRAL PROPHYLAXIS
     Dosage: 900MG
     Route: 048
  6. VALGANCICLOVIR HCL [Suspect]
     Route: 048
  7. VALGANCICLOVIR HCL [Suspect]
     Dosage: 900MG
     Route: 048
  8. ACYCLOVIR [Concomitant]
     Indication: ANTIVIRAL PROPHYLAXIS
     Route: 048
  9. SIROLIMUS [Concomitant]
     Indication: IMMUNOSUPPRESSION
  10. IMIQUIMOD [Concomitant]
  11. TAZAROTENE [Concomitant]
     Route: 061
  12. VALGANCICLOVIR HCL [Concomitant]
     Indication: EVIDENCE BASED TREATMENT

REACTIONS (5)
  - ALOPECIA [None]
  - DEFORMITY [None]
  - MADAROSIS [None]
  - RASH PAPULAR [None]
  - TRICHOSTASIS SPINULOSA [None]
